FAERS Safety Report 7518544-2 (Version None)
Quarter: 2011Q2

REPORT INFORMATION
  Report Type: 
  Country: None (occurrence: None)
  Receive Date: 20110602
  Receipt Date: 20110530
  Transmission Date: 20111010
  Serious: Yes (Hospitalization, Other)
  Sender: FDA-Public Use
  Company Number: FR-ABBOTT-11P-056-0729130-00

PATIENT
  Sex: Female

DRUGS (7)
  1. NORVIR [Suspect]
     Dates: start: 20110307, end: 20110310
  2. TRUVADA [Suspect]
     Dates: start: 20110307, end: 20110310
  3. PREZISTA [Suspect]
     Dates: start: 20110307, end: 20110310
  4. TRUVADA [Suspect]
     Indication: HIV INFECTION
     Route: 048
     Dates: start: 20100901
  5. NORVIR [Suspect]
     Indication: HIV INFECTION
     Route: 048
     Dates: start: 20100901
  6. CASSIA SIEBERIANA ROOTS [Concomitant]
     Indication: WEIGHT DECREASED
     Dates: start: 20101001, end: 20101001
  7. PREZISTA [Suspect]
     Indication: HIV INFECTION
     Route: 048
     Dates: start: 20100901

REACTIONS (8)
  - HEPATIC FAILURE [None]
  - CYTOLYTIC HEPATITIS [None]
  - NAUSEA [None]
  - VOMITING [None]
  - ABDOMINAL PAIN [None]
  - HEPATITIS [None]
  - LIVER FUNCTION TEST ABNORMAL [None]
  - OVARIAN CYST [None]
